FAERS Safety Report 21076095 (Version 1)
Quarter: 2022Q3

REPORT INFORMATION
  Report Type: Spontaneous
  Country: FR (occurrence: FR)
  Receive Date: 20220713
  Receipt Date: 20220713
  Transmission Date: 20221026
  Serious: Yes (Other)
  Sender: FDA-Public Use
  Company Number: FR-BELPHARMA-2022000025

PATIENT
  Sex: Male

DRUGS (23)
  1. SERTRALINE [Suspect]
     Active Substance: SERTRALINE HYDROCHLORIDE
     Dosage: 100 MG, 1X/DAY
     Route: 048
     Dates: start: 20220620
  2. SERTRALINE [Suspect]
     Active Substance: SERTRALINE HYDROCHLORIDE
     Dosage: 150 MG, 1X/DAY
     Route: 048
     Dates: start: 20220613, end: 20220619
  3. TEMOCILLIN [Suspect]
     Active Substance: TEMOCILLIN
     Indication: Sepsis
     Dosage: 6 G, 1X/DAY (CONTINUOUS INFUSION)
     Route: 042
     Dates: start: 20220608, end: 20220620
  4. TEMOCILLIN [Suspect]
     Active Substance: TEMOCILLIN
     Indication: Klebsiella infection
  5. TEMOCILLIN [Suspect]
     Active Substance: TEMOCILLIN
     Indication: Urinary tract infection
  6. MIRTAZAPINE [Suspect]
     Active Substance: MIRTAZAPINE
     Dosage: 15 MG, 1X/DAY (1 TABLET AT BEDTIME)
     Route: 048
     Dates: start: 20220613, end: 20220619
  7. MIRTAZAPINE [Suspect]
     Active Substance: MIRTAZAPINE
     Dosage: 7.5 MG, 1X/DAY (0.5 TABLET AT BEDTIME)
     Route: 048
     Dates: start: 20220620
  8. MELATONIN [Concomitant]
     Active Substance: MELATONIN
     Dosage: 2 MG, 1X/DAY (1 TABLET AT BEDTIME)
     Route: 048
     Dates: start: 20220613
  9. KARDEGIC [Concomitant]
     Active Substance: ASPIRIN DL-LYSINE
     Dosage: 75 MG, 1X/DAY (1 SACHET AT LUNCH TIME)
     Route: 048
     Dates: start: 20220613
  10. ACETAMINOPHEN [Concomitant]
     Active Substance: ACETAMINOPHEN
     Dosage: 1 G (FREQ:6 H;AT 00H, 06H, 12H 18H)
     Route: 048
     Dates: start: 20220613
  11. LANSOPRAZOLE [Concomitant]
     Active Substance: LANSOPRAZOLE
     Dosage: 15 MG, 1X/DAY (ONE CAPSULE IN THE MORNING)
     Route: 048
     Dates: start: 20220613
  12. INSULIN ASPART [Concomitant]
     Active Substance: INSULIN ASPART
     Dosage: 0.65 IU, 1X/DAY (AT 16H INSULINE PUMP, POSOLOGY IN IU/HOUR)
     Route: 058
     Dates: start: 20220613
  13. INSULIN ASPART [Concomitant]
     Active Substance: INSULIN ASPART
     Dosage: AT 02HINSULINE PUMP, POSOLOGY IN IU/HOUR
     Route: 058
     Dates: start: 20220613
  14. INSULIN ASPART [Concomitant]
     Active Substance: INSULIN ASPART
     Dosage: AT 06HINSULINE PUMP, POSOLOGY IN IU/HOUR
     Route: 058
     Dates: start: 20220613
  15. INSULIN ASPART [Concomitant]
     Active Substance: INSULIN ASPART
     Dosage: AT 12HINSULINE PUMP, POSOLOGY IN IU/HOUR
     Route: 058
     Dates: start: 20220613
  16. INSULIN ASPART [Concomitant]
     Active Substance: INSULIN ASPART
     Dosage: AT 00HINSULINE PUMP, POSOLOGY IN IU/HOUR
     Route: 058
     Dates: start: 20220613
  17. SERETIDE [Concomitant]
     Active Substance: FLUTICASONE PROPIONATE\SALMETEROL XINAFOATE
     Dosage: 1 DF (FREQ:12 H; 1 INHALATION IN THE MORNING1 INHALATION IN THE EVENING)
     Route: 055
     Dates: start: 20220613
  18. POLYETHYLENE GLYCOL 4000 [Concomitant]
     Active Substance: POLYETHYLENE GLYCOL 4000
     Dosage: 10 G (FREQ: 8 H; 1 SACHET IN THE MORNING1 SACHET AT LUNCHTIME 1 SACHET IN THE EVENING)
     Route: 048
     Dates: start: 20220613
  19. MORPHINE SULFATE [Concomitant]
     Active Substance: MORPHINE SULFATE
     Dosage: 5 MG, AS NEEDED (1 CAPSULE PER INTAKE, MAXIMUM 4 CAPSULES PER DAY (IF PAIN ABOVE 4/10))
     Route: 048
     Dates: start: 20220613
  20. INSULIN ASPART [Concomitant]
     Active Substance: INSULIN ASPART
     Dosage: 4 IU, 1X/DAY (BEFORE DINNER SYSTEMATIC MEAL-BOLUS (AT THE BEGINNING OF MEALS))
     Route: 058
     Dates: start: 20220613
  21. INSULIN ASPART [Concomitant]
     Active Substance: INSULIN ASPART
     Dosage: 4 IU, 1X/DAY (BEFORE LUNCH TIME SYSTEMATIC MEAL-BOLUS (AT THE BEGINNING OF MEALS))
     Route: 058
     Dates: start: 20220613
  22. INSULIN ASPART [Concomitant]
     Active Substance: INSULIN ASPART
     Dosage: 2 IU, 1X/DAY (BEFORE BREAKFAST SYSTEMATIC MEAL-BOLUS (AT THE BEGINNING OF MEALS))
     Route: 058
     Dates: start: 20220613
  23. OXAZEPAM [Concomitant]
     Active Substance: OXAZEPAM
     Dosage: 10 MG, AS NEEDED (1 TABLET PER INTAKE, MAXIMUM 3 TABLETS PER DAY (IF ANXIOUS))
     Route: 048
     Dates: start: 20220613

REACTIONS (1)
  - Cholestasis [Unknown]
